FAERS Safety Report 9063767 (Version 2)
Quarter: 2013Q2

REPORT INFORMATION
  Report Type: Report from Study
  Country: US (occurrence: US)
  Receive Date: 20130213
  Receipt Date: 20130402
  Transmission Date: 20140414
  Serious: Yes (Death, Hospitalization, Other)
  Sender: FDA-Public Use
  Company Number: US-ASTELLAS-2012US001903

PATIENT
  Age: 56 Year
  Sex: Male

DRUGS (3)
  1. ERLOTINIB TABLET [Suspect]
     Indication: LUNG CARCINOMA CELL TYPE UNSPECIFIED STAGE 0
     Dosage: 150 MG, UID/QD
     Route: 048
     Dates: start: 20120130, end: 201212
  2. ERLOTINIB TABLET [Suspect]
     Dosage: 25 MG, UID/QD
     Route: 048
     Dates: start: 20120130, end: 20121008
  3. ERLOTINIB TABLET [Suspect]
     Dosage: UNK
     Route: 048

REACTIONS (12)
  - Gastroenteritis [Recovered/Resolved]
  - Dehydration [Recovered/Resolved]
  - Sinus headache [Unknown]
  - Nausea [Unknown]
  - Rash [Unknown]
  - Rash erythematous [Unknown]
  - Onychoclasis [Unknown]
  - Swelling [Unknown]
  - Onychomadesis [Unknown]
  - Vomiting [Unknown]
  - Fatigue [Unknown]
  - Malignant neoplasm progression [Fatal]
